FAERS Safety Report 9227836 (Version 1)
Quarter: 2013Q2

REPORT INFORMATION
  Report Type: Spontaneous
  Country: US (occurrence: None)
  Receive Date: 20130411
  Receipt Date: 20130411
  Transmission Date: 20140414
  Serious: Yes (Hospitalization)
  Sender: FDA-Public Use
  Company Number: None

PATIENT
  Age: 57 Year
  Sex: Female
  Weight: 82.6 kg

DRUGS (10)
  1. ISOSULFAN BLUE [Suspect]
     Indication: INVASIVE DUCTAL BREAST CARCINOMA
     Dosage: 5 ML ONCE INTALYMPHA?ONE TIME ONLY
     Route: 027
  2. FENTANY [Concomitant]
  3. MIDAZOLAM [Concomitant]
  4. SUCCINYLCHOLINE [Concomitant]
  5. ROCURONIUM [Concomitant]
  6. ANCEF [Concomitant]
  7. PROPOFOL [Concomitant]
  8. ASPIRIN [Concomitant]
  9. CALCIUM [Concomitant]
  10. VIT D [Concomitant]

REACTIONS (2)
  - Anaphylactic reaction [None]
  - Procedural complication [None]
